FAERS Safety Report 25700368 (Version 1)
Quarter: 2025Q3

REPORT INFORMATION
  Report Type: Spontaneous
  Country: US (occurrence: None)
  Receive Date: 20250818
  Receipt Date: 20250818
  Transmission Date: 20251020
  Serious: Yes (Death)
  Sender: FDA-CTU
  Company Number: None

PATIENT
  Age: 95 Year
  Sex: Female

DRUGS (6)
  1. COLLAGENASE SANTYL [Suspect]
     Active Substance: COLLAGENASE CLOSTRIDIUM HISTOLYTICUM
     Dates: start: 20250723
  2. AMLODIPINE BESYLATE 2.5 MG TABLETS [Concomitant]
  3. LATANOPROST 0.005% OPHTH SOLN 2.5ML [Concomitant]
  4. LEVOTHYROXINE 0.025MG (25MCG) CAPS [Concomitant]
  5. POTASSIUM CHLOR 10% LIQ(20MEQ/15ML) [Concomitant]
  6. VALSARTAN [Concomitant]
     Active Substance: VALSARTAN

REACTIONS (1)
  - Death [None]
